FAERS Safety Report 15336294 (Version 8)
Quarter: 2020Q1

REPORT INFORMATION
  Report Type: Spontaneous
  Country: US (occurrence: US)
  Receive Date: 20180830
  Receipt Date: 20200121
  Transmission Date: 20200409
  Serious: Yes (Hospitalization)
  Sender: FDA-Public Use
  Company Number: US-ACTELION-A-NJ2018-177673

PATIENT
  Age: 76 Year
  Sex: Female

DRUGS (27)
  1. CARTIA XT [Concomitant]
     Active Substance: DILTIAZEM HYDROCHLORIDE
  2. AMLODIPINE [Concomitant]
     Active Substance: AMLODIPINE BESYLATE
  3. ELIQUIS [Concomitant]
     Active Substance: APIXABAN
  4. CLOPIDOGREL [Concomitant]
     Active Substance: CLOPIDOGREL BISULFATE
  5. PROAIR HFA [Concomitant]
     Active Substance: ALBUTEROL SULFATE
  6. DOK [Concomitant]
     Active Substance: DOCUSATE SODIUM
  7. WARFARIN [Concomitant]
     Active Substance: WARFARIN
  8. SPIRONOLACTONE. [Concomitant]
     Active Substance: SPIRONOLACTONE
  9. CHLORTHALIDON [Concomitant]
     Active Substance: CHLORTHALIDONE
  10. POTASSIUM CHLORIDE. [Concomitant]
     Active Substance: POTASSIUM CHLORIDE
  11. ROPINIROLE. [Concomitant]
     Active Substance: ROPINIROLE
  12. NITROGLYCERIN. [Concomitant]
     Active Substance: NITROGLYCERIN
  13. OPSUMIT [Suspect]
     Active Substance: MACITENTAN
     Indication: PULMONARY ARTERIAL HYPERTENSION
     Dosage: 10 MG, QD
     Route: 048
     Dates: start: 20180720
  14. LOSARTAN POTASSIUM. [Concomitant]
     Active Substance: LOSARTAN POTASSIUM
  15. MECLIZINE [Concomitant]
     Active Substance: MECLIZINE HYDROCHLORIDE
  16. ONDANSETRON [Concomitant]
     Active Substance: ONDANSETRON
  17. ATENOLOL. [Concomitant]
     Active Substance: ATENOLOL
  18. FLUTICASONE. [Concomitant]
     Active Substance: FLUTICASONE
  19. BREO ELLIPTA [Concomitant]
     Active Substance: FLUTICASONE FUROATE\VILANTEROL TRIFENATATE
  20. FURSEMIDE [Concomitant]
     Active Substance: FUROSEMIDE
  21. METOPROL XL [Concomitant]
  22. SILDENAFIL. [Suspect]
     Active Substance: SILDENAFIL
     Indication: PULMONARY ARTERIAL HYPERTENSION
     Dosage: 20 MG, TID
     Route: 048
     Dates: start: 20180324
  23. PANTOPRAZOLE [Concomitant]
     Active Substance: PANTOPRAZOLE
  24. FERROUS SULFATE. [Concomitant]
     Active Substance: FERROUS SULFATE
  25. ATORVASTATIN [Concomitant]
     Active Substance: ATORVASTATIN
  26. TRAMADOL. [Concomitant]
     Active Substance: TRAMADOL
  27. DILTIAZEM. [Concomitant]
     Active Substance: DILTIAZEM

REACTIONS (14)
  - Atrial appendage closure [Recovered/Resolved]
  - Product dose omission [Unknown]
  - Nausea [Not Recovered/Not Resolved]
  - Blood glucose decreased [Not Recovered/Not Resolved]
  - Diarrhoea [Not Recovered/Not Resolved]
  - Dyspepsia [Not Recovered/Not Resolved]
  - Dyspnoea [Unknown]
  - Thrombosis [Not Recovered/Not Resolved]
  - Vomiting [Unknown]
  - Product distribution issue [Unknown]
  - Transfusion [Not Recovered/Not Resolved]
  - Myocardial infarction [Not Recovered/Not Resolved]
  - Paranasal sinus hypersecretion [Unknown]
  - Weight decreased [Not Recovered/Not Resolved]

NARRATIVE: CASE EVENT DATE: 20180829
